FAERS Safety Report 21254802 (Version 4)
Quarter: 2022Q4

REPORT INFORMATION
  Report Type: Report from Study
  Country: US (occurrence: US)
  Receive Date: 20220825
  Receipt Date: 20221117
  Transmission Date: 20230112
  Serious: No
  Sender: FDA-Public Use
  Company Number: US-NOVARTISTESTPH-NVSC2022US190724

PATIENT
  Sex: Female

DRUGS (2)
  1. ENTRESTO [Suspect]
     Active Substance: SACUBITRIL\VALSARTAN
     Indication: Product used for unknown indication
     Dosage: UNK, BID
     Route: 065
  2. ENTRESTO [Suspect]
     Active Substance: SACUBITRIL\VALSARTAN
     Dosage: 1 DOSAGE FORM, BID (49/51 MG)
     Route: 048
     Dates: start: 2021

REACTIONS (10)
  - Malaise [Unknown]
  - Dyspnoea exertional [Unknown]
  - Ejection fraction decreased [Unknown]
  - Fatigue [Not Recovered/Not Resolved]
  - Dyspnoea [Not Recovered/Not Resolved]
  - Condition aggravated [Unknown]
  - Cardiac disorder [Not Recovered/Not Resolved]
  - Memory impairment [Unknown]
  - Dizziness [Not Recovered/Not Resolved]
  - Drug ineffective [Unknown]
